FAERS Safety Report 16139690 (Version 1)
Quarter: 2019Q2

REPORT INFORMATION
  Report Type: Spontaneous
  Country: SE (occurrence: SE)
  Receive Date: 20190401
  Receipt Date: 20190401
  Transmission Date: 20190711
  Serious: Yes (Hospitalization)
  Sender: FDA-Public Use
  Company Number: SE-TEVA-2019-SE-1031094

PATIENT
  Age: 73 Year
  Sex: Male

DRUGS (8)
  1. MOVICOL [Concomitant]
     Active Substance: POLYETHYLENE GLYCOL 3350\POTASSIUM CHLORIDE\SODIUM BICARBONATE\SODIUM CHLORIDE
     Dates: start: 20180824
  2. PANODIL [Concomitant]
     Active Substance: ACETAMINOPHEN
     Dosage: 4000 MILLIGRAM DAILY;
     Dates: start: 20180824
  3. CANDESARTAN CILEXETIL. [Concomitant]
     Active Substance: CANDESARTAN CILEXETIL
     Dosage: 16 MILLIGRAM DAILY;
     Dates: start: 20180901, end: 20190304
  4. RESONIUM [Concomitant]
     Active Substance: SODIUM POLYSTYRENE SULFONATE
     Dates: start: 20180514
  5. MATRIFEN [Suspect]
     Active Substance: FENTANYL
     Indication: GROIN PAIN
     Dosage: PL?STER, 12 MICROGRAMS 1 ?L WAS 3 DAYS
     Dates: start: 20190225
  6. OXYCODONE [Suspect]
     Active Substance: OXYCODONE
     Indication: GROIN PAIN
     Dosage: ESCALATION FOR 2 WEEKS FROM 1X2 TO 4X2, THEN LOWERING TO 10 + 20MG.
     Route: 048
     Dates: start: 20190211, end: 20190228
  7. LYRICA [Suspect]
     Active Substance: PREGABALIN
     Indication: GROIN PAIN
     Dosage: 50 MILLIGRAM DAILY; 25 MG 1X2
     Route: 048
     Dates: start: 20190227
  8. AMITRIPTYLINE [Suspect]
     Active Substance: AMITRIPTYLINE
     Indication: GROIN PAIN
     Dosage: 50 MILLIGRAM DAILY; 10 MG 5X1 OVERNIGHT
     Route: 048
     Dates: start: 20190107

REACTIONS (2)
  - Altered state of consciousness [Recovered/Resolved]
  - Confusional state [Recovered/Resolved]

NARRATIVE: CASE EVENT DATE: 20190228
